FAERS Safety Report 5005963-1 (Version None)
Quarter: 2006Q2

REPORT INFORMATION
  Report Type: 
  Country: None (occurrence: None)
  Receive Date: 20060517
  Receipt Date: 20060517
  Transmission Date: 20061013
  Serious: Yes (Life-Threatening)
  Sender: FDA-Public Use
  Company Number: None

PATIENT
  Sex: Male

DRUGS (8)
  1. LAMOTRIGINE [Suspect]
     Indication: CONVULSION
     Dosage: UPWARD TAPER PO
     Route: 048
     Dates: start: 20060203, end: 20060214
  2. ALLOPURINOL [Concomitant]
  3. DILTIAZEM [Concomitant]
  4. METOPROLOL TARTRATE [Concomitant]
  5. OMEPRAZOLE [Concomitant]
  6. PROPOXYPHENE HCL AND ACETAMINOPHEN [Concomitant]
  7. SALSALATE [Concomitant]
  8. ASPIRIN [Concomitant]

REACTIONS (1)
  - RASH GENERALISED [None]
